FAERS Safety Report 4583864-0 (Version None)
Quarter: 2005Q1

REPORT INFORMATION
  Report Type: 
  Country: None (occurrence: None)
  Receive Date: 20050211
  Receipt Date: 20050204
  Transmission Date: 20050727
  Serious: Yes (Life-Threatening)
  Sender: FDA-Public Use
  Company Number: 2005AP00962

PATIENT
  Sex: Female

DRUGS (5)
  1. NAROPIN [Suspect]
     Dosage: 150 MG DAILY IV
     Route: 042
     Dates: start: 20031029, end: 20031029
  2. LITHIUM [Concomitant]
  3. OLANZAPINE [Concomitant]
  4. MIRTAZAPINE [Concomitant]
  5. TEMAZE [Concomitant]

REACTIONS (2)
  - GRAND MAL CONVULSION [None]
  - VENTRICULAR TACHYCARDIA [None]
